FAERS Safety Report 25644388 (Version 2)
Quarter: 2025Q3

REPORT INFORMATION
  Report Type: Spontaneous
  Country: US (occurrence: US)
  Receive Date: 20250805
  Receipt Date: 20250813
  Transmission Date: 20251021
  Serious: No
  Sender: PFIZER
  Company Number: US-PFIZER INC-202500157131

PATIENT
  Age: 64 Year
  Sex: Female
  Weight: 99.79 kg

DRUGS (1)
  1. EXEMESTANE [Suspect]
     Active Substance: EXEMESTANE
     Indication: Breast cancer stage I
     Dosage: 25MG, ONE TABLET EVERY DAY, BY MOUTH AFTER DINNER
     Route: 048
     Dates: start: 202507

REACTIONS (5)
  - Pain in extremity [Unknown]
  - Limb discomfort [Recovering/Resolving]
  - Abdominal distension [Not Recovered/Not Resolved]
  - Illness [Unknown]
  - Nausea [Recovered/Resolved]

NARRATIVE: CASE EVENT DATE: 20250101
